FAERS Safety Report 8821359 (Version 1)
Quarter: 2012Q4

REPORT INFORMATION
  Report Type: 
  Country: CH (occurrence: CH)
  Receive Date: 20121002
  Receipt Date: 20121002
  Transmission Date: 20130627
  Serious: Yes (Hospitalization)
  Sender: FDA-Public Use
  Company Number: CH-ELI_LILLY_AND_COMPANY-CH201209005349

PATIENT
  Age: 61 Year
  Sex: Male
  Weight: 90 kg

DRUGS (19)
  1. CYMBALTA [Suspect]
     Dosage: 120 mg, qd
     Route: 048
  2. LITHIUM [Concomitant]
     Dosage: 1320 mg, qd
     Route: 048
     Dates: end: 20120706
  3. LITHIUM [Concomitant]
     Dosage: 990 mg, qd
     Route: 048
  4. IBUPROFEN [Concomitant]
     Dosage: 1800 mg, qd
     Route: 048
     Dates: end: 20120706
  5. PREGABALIN [Concomitant]
     Dosage: 225 mg, qd
     Route: 048
  6. OXYCODON [Concomitant]
     Dosage: 20 mg, qd
     Route: 048
  7. MIRTAZAPIN [Concomitant]
     Dosage: 45 mg, qd
     Route: 048
  8. LORAZEPAM [Concomitant]
     Dosage: 1 mg, qd
     Route: 048
  9. ATACAND PLUS [Concomitant]
     Dosage: 1 DF, qd
     Route: 048
  10. ACETYLSALICYLIC ACID ALUMINIUM [Concomitant]
     Dosage: 100 mg, qd
     Route: 048
  11. BECOZYM [Concomitant]
     Dosage: 1 DF, qd
     Route: 048
  12. CEFUROXIM                          /00454602/ [Concomitant]
     Dosage: 1000 mg, qd
     Route: 048
  13. DAFALGAN [Concomitant]
     Dosage: 3 g, qd
     Route: 048
  14. DULCOLAX [Concomitant]
     Dosage: 5 mg, qd
     Route: 048
  15. ELTROXIN [Concomitant]
     Dosage: 50 ug, qd
     Route: 048
  16. KETESSE [Concomitant]
     Dosage: 50 mg, qd
     Route: 048
  17. MAGNESIOCARD [Concomitant]
     Dosage: 10 mg, qd
     Route: 048
  18. PANTOZOL [Concomitant]
     Dosage: 40 mg, unknown
     Route: 048
  19. VALERIAN EXTRACT [Concomitant]
     Dosage: 500 mg, qd
     Route: 048

REACTIONS (8)
  - Renal impairment [Recovered/Resolved]
  - Drug level increased [Recovered/Resolved]
  - Ataxia [Recovered/Resolved]
  - Somnolence [Recovered/Resolved]
  - Muscular weakness [Recovered/Resolved]
  - Fatigue [Recovered/Resolved]
  - Tremor [Recovered/Resolved]
  - Drug interaction [Unknown]
